FAERS Safety Report 5881736-2 (Version None)
Quarter: 2008Q3

REPORT INFORMATION
  Report Type: 
  Country: None (occurrence: None)
  Receive Date: 20080912
  Receipt Date: 20080722
  Transmission Date: 20090109
  Serious: Yes (Hospitalization)
  Sender: FDA-Public Use
  Company Number: US-ABBOTT-08P-163-0462127-00

PATIENT
  Sex: Male
  Weight: 80.358 kg

DRUGS (10)
  1. HUMIRA [Suspect]
     Indication: CROHN'S DISEASE
     Route: 058
  2. MESALAMINE [Concomitant]
     Indication: CROHN'S DISEASE
     Dosage: 250 MG - 4 CAPSULES, FOUR TIMES DAILY
     Route: 048
     Dates: start: 19850101
  3. IMODIUM [Concomitant]
     Indication: CROHN'S DISEASE
     Dosage: 2 MG-3 CAPSULES, FOUR TIMES DAILY
     Route: 048
     Dates: start: 19850101
  4. LANSOPRAZOLE [Concomitant]
     Indication: GASTROOESOPHAGEAL REFLUX DISEASE
     Route: 048
  5. VERAPAMIL HYDROCHLORIDE [Concomitant]
     Indication: HYPERTENSION
     Dosage: 300 MG AT BEDTIME
     Route: 048
  6. NORGESIC [Concomitant]
     Indication: PAIN
     Dosage: 100 MG- 2 PATCHES EVERY 48 HOURS
     Route: 062
  7. NORGESIC [Concomitant]
     Indication: SURGERY
  8. TYLOX [Concomitant]
     Indication: BREAKTHROUGH PAIN
     Dosage: 10/325 MG-2 TABS EVERY 4 HRS AS NEEDED
  9. FEROCET [Concomitant]
     Indication: HEADACHE
     Dosage: 2 TABS EVERY 4 HOURS AS NEEDED
     Route: 048
  10. MERCAPTOPURINE [Concomitant]
     Indication: DRUG USE FOR UNKNOWN INDICATION

REACTIONS (2)
  - OEDEMA PERIPHERAL [None]
  - THROMBOSIS [None]
